FAERS Safety Report 4611046-2 (Version None)
Quarter: 2005Q1

REPORT INFORMATION
  Report Type: 
  Country: None (occurrence: None)
  Receive Date: 20050317
  Receipt Date: 20050306
  Transmission Date: 20050727
  Serious: Yes (Hospitalization)
  Sender: FDA-Public Use
  Company Number: US-AMGEN-US120307

PATIENT
  Sex: Female

DRUGS (7)
  1. PROCRIT [Suspect]
     Indication: ANAEMIA OF MALIGNANT DISEASE
     Route: 042
     Dates: start: 20050223
  2. GEMZAR [Concomitant]
  3. ELOXATIN (SANOFI) [Concomitant]
  4. COMPAZINE [Concomitant]
  5. KYTRIL [Concomitant]
  6. MORPHINE [Concomitant]
  7. LORTAB [Concomitant]

REACTIONS (4)
  - BURNING SENSATION [None]
  - NAUSEA [None]
  - PNEUMONECTOMY [None]
  - VOMITING [None]
